FAERS Safety Report 13774960 (Version 1)
Quarter: 2017Q3

REPORT INFORMATION
  Report Type: Spontaneous
  Country: US (occurrence: US)
  Receive Date: 20170721
  Receipt Date: 20170721
  Transmission Date: 20171127
  Serious: Yes (Hospitalization)
  Sender: FDA-Public Use
  Company Number: US-JNJFOC-20170715251

PATIENT
  Age: 73 Year
  Sex: Male
  Weight: 123.36 kg

DRUGS (16)
  1. VITAMIN D3 [Concomitant]
     Active Substance: CHOLECALCIFEROL
  2. CARVEDILOL. [Concomitant]
     Active Substance: CARVEDILOL
  3. TIMOLOL. [Concomitant]
     Active Substance: TIMOLOL
  4. METFORMIN [Concomitant]
     Active Substance: METFORMIN HYDROCHLORIDE
  5. MORPHINE [Concomitant]
     Active Substance: MORPHINE
  6. PROCHLORPERAZINE. [Concomitant]
     Active Substance: PROCHLORPERAZINE
  7. CALCIUM CARBONATE. [Concomitant]
     Active Substance: CALCIUM CARBONATE
  8. CITALOPRAM [Concomitant]
     Active Substance: CITALOPRAM HYDROBROMIDE
  9. GINKO BILOBA [Concomitant]
     Active Substance: GINKGO
  10. LISINOPRIL. [Concomitant]
     Active Substance: LISINOPRIL
  11. BRIMONIDINE TARTRATE. [Concomitant]
     Active Substance: BRIMONIDINE TARTRATE
  12. DORZOLAMIDE [Concomitant]
     Active Substance: DORZOLAMIDE
  13. MACROGOL [Concomitant]
     Active Substance: POLYETHYLENE GLYCOLS
  14. GLIMEPIRIDE. [Concomitant]
     Active Substance: GLIMEPIRIDE
  15. IMBRUVICA [Suspect]
     Active Substance: IBRUTINIB
     Indication: B-CELL SMALL LYMPHOCYTIC LYMPHOMA
     Route: 048
     Dates: start: 20170327, end: 2017
  16. COLACE [Concomitant]
     Active Substance: DOCUSATE SODIUM

REACTIONS (8)
  - Feeling abnormal [Unknown]
  - Incorrect dose administered [Unknown]
  - Renal disorder [Unknown]
  - Off label use [Unknown]
  - Contusion [Unknown]
  - Pulmonary oedema [Unknown]
  - Amnesia [Unknown]
  - Cardiac discomfort [Unknown]

NARRATIVE: CASE EVENT DATE: 20170327
